FAERS Safety Report 5015618-5 (Version None)
Quarter: 2006Q2

REPORT INFORMATION
  Report Type: 
  Country: None (occurrence: None)
  Receive Date: 20060601
  Receipt Date: 20060424
  Transmission Date: 20061013
  Serious: No
  Sender: FDA-Public Use
  Company Number: AU-GLAXOSMITHKLINE-B0421278A

PATIENT
  Age: 47 Year
  Sex: Female

DRUGS (8)
  1. NICABATE CQ CLEAR 21MG [Suspect]
     Indication: SMOKING CESSATION THERAPY
     Dosage: 21MG PER DAY
     Route: 062
     Dates: start: 20060201, end: 20060301
  2. DIAMICRON [Concomitant]
     Indication: DIABETES MELLITUS
     Route: 065
  3. DIAFORMIN [Concomitant]
     Indication: DIABETES MELLITUS
     Route: 065
  4. AMARYL [Concomitant]
     Route: 065
  5. DIABEX [Concomitant]
     Route: 065
  6. AVANDIA [Concomitant]
     Route: 065
  7. ASPIRIN [Concomitant]
     Route: 065
  8. KARVEA [Concomitant]
     Route: 065

REACTIONS (6)
  - APPLICATION SITE REACTION [None]
  - CONDITION AGGRAVATED [None]
  - DERMATITIS CONTACT [None]
  - DEVICE FAILURE [None]
  - PSORIASIS [None]
  - TREATMENT NONCOMPLIANCE [None]
